FAERS Safety Report 4867747-4 (Version None)
Quarter: 2005Q4

REPORT INFORMATION
  Report Type: 
  Country: None (occurrence: None)
  Receive Date: 20051228
  Receipt Date: 20051213
  Transmission Date: 20060501
  Serious: Yes (Death)
  Sender: FDA-Public Use
  Company Number: ES-JNJFOC-20051202903

PATIENT
  Age: 68 Year
  Sex: Female

DRUGS (13)
  1. REMICADE [Suspect]
     Route: 042
  2. REMICADE [Suspect]
     Indication: RHEUMATOID ARTHRITIS
     Route: 042
  3. METHOTREXATE [Concomitant]
     Route: 065
     Dates: end: 20040501
  4. METHOTREXATE [Concomitant]
     Route: 065
     Dates: end: 20040501
  5. METHOTREXATE [Concomitant]
     Indication: RHEUMATOID ARTHRITIS
     Route: 065
     Dates: end: 20040501
  6. FOSAMAX [Concomitant]
     Route: 065
  7. VERISCAL [Concomitant]
     Route: 065
  8. VERISCAL [Concomitant]
     Route: 065
  9. ORFIDAL [Concomitant]
     Route: 065
  10. PARACETAMOL [Concomitant]
     Route: 065
  11. ACFOL [Concomitant]
     Route: 065
  12. OMEPRAZOLE [Concomitant]
     Route: 065
  13. ARTINOVO [Concomitant]
     Route: 065

REACTIONS (8)
  - AORTIC VALVE INCOMPETENCE [None]
  - DEPRESSION [None]
  - DISSEMINATED TUBERCULOSIS [None]
  - FALL [None]
  - PYREXIA [None]
  - SEPTIC SHOCK [None]
  - SUBDURAL HAEMATOMA [None]
  - WEIGHT DECREASED [None]
